FAERS Safety Report 5791980-0 (Version None)
Quarter: 2008Q2

REPORT INFORMATION
  Report Type: 
  Country: None (occurrence: None)
  Receive Date: 20080626
  Receipt Date: 20080624
  Transmission Date: 20081010
  Serious: Yes (Death)
  Sender: FDA-Public Use
  Company Number: US-BRISTOL-MYERS SQUIBB COMPANY-14239743

PATIENT

DRUGS (1)
  1. ABILIFY [Suspect]

REACTIONS (2)
  - DEATH [None]
  - OBESITY [None]
